FAERS Safety Report 11773339 (Version 1)
Quarter: 2015Q4

REPORT INFORMATION
  Report Type: Spontaneous
  Country: US (occurrence: None)
  Receive Date: 20151124
  Receipt Date: 20151124
  Transmission Date: 20160304
  Serious: Yes (Hospitalization, Other)
  Sender: FDA-Public Use
  Company Number: US-MDT-ADR-2015-02221

PATIENT
  Age: 22 Year
  Sex: Female

DRUGS (1)
  1. LIORESAL [Suspect]
     Active Substance: BACLOFEN
     Indication: MUSCLE SPASTICITY
     Dosage: 400 MCG/DAY

REACTIONS (8)
  - Vomiting [None]
  - Implant site extravasation [None]
  - Gait disturbance [None]
  - Swelling [None]
  - Muscle tightness [None]
  - Cerebrospinal fluid leakage [None]
  - No therapeutic response [None]
  - Nausea [None]
